FAERS Safety Report 13354709 (Version 1)
Quarter: 2017Q1

REPORT INFORMATION
  Report Type: Spontaneous
  Country: DE (occurrence: DE)
  Receive Date: 20170321
  Receipt Date: 20170321
  Transmission Date: 20170429
  Serious: Yes (Other)
  Sender: FDA-Public Use
  Company Number: DE-GLAXOSMITHKLINE-DE2017GSK037872

PATIENT
  Age: 0 Day
  Sex: Male
  Weight: 2.8 kg

DRUGS (3)
  1. BUPROPION. [Suspect]
     Active Substance: BUPROPION
     Indication: DEPRESSION
     Dosage: 150 MG, QD
     Route: 064
     Dates: start: 20151212, end: 20160914
  2. ESCITALOPRAM [Suspect]
     Active Substance: ESCITALOPRAM OXALATE
     Indication: DEPRESSION
     Dosage: 25 G, QD
     Route: 064
     Dates: start: 20151212, end: 20160914
  3. L-THYROXIN [Suspect]
     Active Substance: LEVOTHYROXINE SODIUM
     Indication: HYPOTHYROIDISM
     Dosage: 100 UG, QD
     Route: 048
     Dates: start: 20151212, end: 20160914

REACTIONS (9)
  - Tremor neonatal [Recovered/Resolved]
  - Tremor [Recovered/Resolved]
  - Hypertonia [Recovered/Resolved]
  - Gastrointestinal disorder [Recovered/Resolved]
  - Oxygen saturation decreased [Recovered/Resolved]
  - Bradycardia [Recovered/Resolved]
  - Small for dates baby [Recovered/Resolved]
  - Drug withdrawal syndrome neonatal [Recovered/Resolved]
  - Agitation neonatal [Recovered/Resolved]

NARRATIVE: CASE EVENT DATE: 20160914
